FAERS Safety Report 11263300 (Version 3)
Quarter: 2015Q4

REPORT INFORMATION
  Report Type: Report from Study
  Country: DE (occurrence: DE)
  Receive Date: 20150712
  Receipt Date: 20151105
  Transmission Date: 20160304
  Serious: Yes (Hospitalization, Other)
  Sender: FDA-Public Use
  Company Number: DE-JNJFOC-20150700481

PATIENT
  Age: 26 Year
  Sex: Male
  Weight: 103 kg

DRUGS (2)
  1. REMICADE [Suspect]
     Active Substance: INFLIXIMAB
     Indication: CROHN^S DISEASE
     Route: 042
     Dates: start: 20140312
  2. REMICADE [Suspect]
     Active Substance: INFLIXIMAB
     Indication: CROHN^S DISEASE
     Route: 042
     Dates: start: 20141203, end: 20150520

REACTIONS (5)
  - Colectomy [Unknown]
  - Cushing^s syndrome [Not Recovered/Not Resolved]
  - Myopathy [Not Recovered/Not Resolved]
  - SLE arthritis [Not Recovered/Not Resolved]
  - Anastomotic stenosis [Recovered/Resolved with Sequelae]

NARRATIVE: CASE EVENT DATE: 201409
